FAERS Safety Report 15927328 (Version 2)
Quarter: 2019Q1

REPORT INFORMATION
  Report Type: Spontaneous
  Country: US (occurrence: US)
  Receive Date: 20190205
  Receipt Date: 20190219
  Transmission Date: 20190417
  Serious: No
  Sender: FDA-Public Use
  Company Number: US-ALLERGAN-1855241US

PATIENT
  Age: 81 Year
  Sex: Female

DRUGS (6)
  1. BOTOX COSMETIC [Suspect]
     Active Substance: ONABOTULINUMTOXINA
     Indication: SKIN WRINKLING
     Dosage: ACTUAL; 20 UNITS IN GLABELLA AND 4 UNITS IN FRONTALIS, SINGLE
     Route: 030
     Dates: start: 20181107, end: 20181107
  2. PRILOCAINE [Concomitant]
     Active Substance: PRILOCAINE
     Indication: LOCAL ANAESTHESIA
     Dosage: UNK
     Route: 061
  3. BOTOX COSMETIC [Suspect]
     Active Substance: ONABOTULINUMTOXINA
     Indication: SKIN WRINKLING
  4. LIDOCAINE. [Concomitant]
     Active Substance: LIDOCAINE
     Indication: LOCAL ANAESTHESIA
     Dosage: UNK
     Route: 061
  5. TETRACAINE. [Concomitant]
     Active Substance: TETRACAINE
     Indication: LOCAL ANAESTHESIA
     Dosage: UNK
     Route: 061
  6. BOTOX COSMETIC [Suspect]
     Active Substance: ONABOTULINUMTOXINA
     Indication: SKIN WRINKLING

REACTIONS (7)
  - Swelling [Unknown]
  - Erythema [Unknown]
  - Pruritus [Unknown]
  - Facial paresis [Unknown]
  - Headache [Not Recovered/Not Resolved]
  - Skin wrinkling [Unknown]
  - Lip disorder [Unknown]

NARRATIVE: CASE EVENT DATE: 201811
